FAERS Safety Report 8956512 (Version 1)
Quarter: 2012Q4

REPORT INFORMATION
  Report Type: 
  Country: BR (occurrence: BR)
  Receive Date: 20121210
  Receipt Date: 20121210
  Transmission Date: 20130627
  Serious: Yes (Other)
  Sender: FDA-Public Use
  Company Number: BR-JNJFOC-20121200960

PATIENT
  Age: 41 Year
  Sex: Female
  Weight: 68 kg

DRUGS (2)
  1. TYLEX [Suspect]
     Indication: ARTHRALGIA
     Dosage: codeine phosphate 7.5 mg
     Route: 048
     Dates: start: 20121126, end: 20121128
  2. MICROVLAR [Concomitant]
     Indication: CONTRACEPTION
     Route: 065

REACTIONS (6)
  - Formication [Not Recovered/Not Resolved]
  - Dizziness [Not Recovered/Not Resolved]
  - Diarrhoea [Not Recovered/Not Resolved]
  - Nausea [Not Recovered/Not Resolved]
  - Vomiting [Not Recovered/Not Resolved]
  - Rash [Not Recovered/Not Resolved]
